FAERS Safety Report 10902677 (Version 2)
Quarter: 2015Q2

REPORT INFORMATION
  Report Type: Report from Study
  Country: US (occurrence: US)
  Receive Date: 20150310
  Receipt Date: 20150415
  Transmission Date: 20150821
  Serious: Yes (Hospitalization)
  Sender: FDA-Public Use
  Company Number: US-ACTELION-A-NJ2014-107237

PATIENT
  Age: 82 Year
  Sex: Female

DRUGS (5)
  1. REMODULIN [Concomitant]
     Active Substance: TREPROSTINIL
  2. MACITENTAN [Suspect]
     Active Substance: MACITENTAN
     Indication: PULMONARY ARTERIAL HYPERTENSION
     Dosage: 10 MG, QD
     Route: 048
     Dates: start: 20140508
  3. TYVASO [Concomitant]
     Active Substance: TREPROSTINIL
     Dosage: UNK, QID 3 - 9 BREATHS
  4. RIOCIGUAT [Concomitant]
     Active Substance: RIOCIGUAT
     Dosage: 1.5 MG, TID
  5. SILDENAFIL. [Concomitant]
     Active Substance: SILDENAFIL

REACTIONS (10)
  - Dry mouth [Unknown]
  - Dysphonia [Unknown]
  - Hypokinesia [Unknown]
  - Cough [Unknown]
  - Oxygen saturation decreased [Unknown]
  - Treatment noncompliance [Unknown]
  - Depressed mood [Unknown]
  - Fatigue [Unknown]
  - Fall [Unknown]
  - Dyspnoea [Unknown]
